FAERS Safety Report 10229430 (Version 1)
Quarter: 2014Q2

REPORT INFORMATION
  Report Type: Spontaneous
  Country: US (occurrence: None)
  Receive Date: 20140515
  Receipt Date: 20140515
  Transmission Date: 20141212
  Serious: Yes (Other)
  Sender: FDA-Public Use
  Company Number: 13US009903

PATIENT
  Age: 39 Year
  Sex: Female
  Weight: 81.6 kg

DRUGS (1)
  1. NAPROXEN SODIUM-PSEUDOEPHEDRINE HYDROCHLORIDE ER 253 (NAPROXEN SODIUM 220 MG, PSEUDOEPHEDRINE HYDROCHLORIDE 120 MG) PROLONGED-RELEASE TABLET [Suspect]
     Indication: NASOPHARYNGITIS
     Route: 048
     Dates: start: 20130918, end: 20130918

REACTIONS (2)
  - Hypersensitivity [None]
  - Swelling face [None]
